FAERS Safety Report 8348164-1 (Version None)
Quarter: 2012Q2

REPORT INFORMATION
  Report Type: 
  Country: None (occurrence: None)
  Receive Date: 20120509
  Receipt Date: 20120502
  Transmission Date: 20120825
  Serious: Yes (Hospitalization)
  Sender: FDA-Public Use
  Company Number: US-BAYER-2011-107917

PATIENT
  Age: 28 Year
  Sex: Female
  Weight: 71.73 kg

DRUGS (10)
  1. YAZ [Suspect]
     Indication: PREMENSTRUAL SYNDROME
     Dosage: UNK
     Dates: start: 20080701, end: 20081101
  2. LEVAQUIN [Concomitant]
     Dosage: 500 MG, UNK
     Dates: start: 20081201
  3. NUVARING [Concomitant]
  4. OXYCODONE HCL AND ACETAMINOPHEN [Concomitant]
     Dosage: 5 MG +#8211; 325 MG TABLETS
     Dates: start: 20081209
  5. NASONEX [Concomitant]
     Indication: MULTIPLE ALLERGIES
     Dosage: UNK
     Dates: start: 20081201
  6. ZITHROMAX [Concomitant]
     Indication: BRONCHITIS
     Dosage: UNK
     Dates: start: 20081209
  7. VITAMIN B-12 [Concomitant]
     Dosage: UNK
     Dates: start: 20081119
  8. MOTRIN [Concomitant]
  9. PERCOCET [Concomitant]
  10. PROVENTIL [Concomitant]
     Dosage: UNK
     Dates: start: 20081201

REACTIONS (12)
  - CHOLECYSTITIS ACUTE [None]
  - ABDOMINAL DISTENSION [None]
  - FLATULENCE [None]
  - DIARRHOEA [None]
  - INJURY [None]
  - CHOLECYSTECTOMY [None]
  - CONSTIPATION [None]
  - PAIN [None]
  - DYSPEPSIA [None]
  - SCAR [None]
  - ANXIETY [None]
  - DEPRESSION [None]
